FAERS Safety Report 7470656-8 (Version None)
Quarter: 2011Q2

REPORT INFORMATION
  Report Type: 
  Country: None (occurrence: None)
  Receive Date: 20110510
  Receipt Date: 20110422
  Transmission Date: 20111010
  Serious: No
  Sender: FDA-Public Use
  Company Number: US-B.I. PHARMACEUTICALS,INC./RIDGEFIELD-2011-BP-05172BP

PATIENT
  Sex: Male

DRUGS (15)
  1. PRADAXA [Suspect]
     Indication: CEREBROVASCULAR ACCIDENT
     Dosage: 300 MG
  2. ALLOPURINOL [Concomitant]
     Dosage: 200 MG
  3. LEVOXYL [Concomitant]
  4. TORSEMIDE [Concomitant]
  5. FOLIC ACID [Concomitant]
  6. TERAZOSIN HCL [Concomitant]
  7. PRADAXA [Suspect]
     Indication: CARDIAC FAILURE
  8. SULFAZINE [Concomitant]
     Dosage: 1000 MG
  9. AMLODIPINE BESYLATE [Concomitant]
  10. LOSARTAN [Concomitant]
  11. STOOL SOFTENER [Concomitant]
  12. DIGOXIN [Concomitant]
  13. METOPROLOL SUCCINATE EXTENDED RELEASE [Concomitant]
  14. LIPITOR [Concomitant]
  15. FERROUS GLUCONATE [Concomitant]

REACTIONS (1)
  - FEELING COLD [None]
